FAERS Safety Report 13609513 (Version 4)
Quarter: 2017Q3

REPORT INFORMATION
  Report Type: Report from Study
  Country: US (occurrence: US)
  Receive Date: 20170602
  Receipt Date: 20170822
  Transmission Date: 20171127
  Serious: Yes (Other)
  Sender: FDA-Public Use
  Company Number: US-PFIZER INC-2017104714

PATIENT
  Age: 55 Year
  Sex: Female

DRUGS (2)
  1. IBRANCE [Suspect]
     Active Substance: PALBOCICLIB
     Dosage: 125 MG, DAILY
     Route: 048
     Dates: start: 20170404
  2. IBRANCE [Suspect]
     Active Substance: PALBOCICLIB
     Indication: BREAST CANCER FEMALE
     Dosage: 125 MG, DAILY
     Route: 048
     Dates: start: 20170302, end: 20170329

REACTIONS (10)
  - Fatigue [Not Recovered/Not Resolved]
  - Dry skin [Unknown]
  - Back pain [Not Recovered/Not Resolved]
  - Leukopenia [Unknown]
  - White blood cell count decreased [Unknown]
  - Musculoskeletal pain [Not Recovered/Not Resolved]
  - Pruritus [Unknown]
  - Hypocalcaemia [Unknown]
  - Bone marrow failure [Not Recovered/Not Resolved]
  - Localised infection [Not Recovered/Not Resolved]

NARRATIVE: CASE EVENT DATE: 2017
